FAERS Safety Report 4492768-3 (Version None)
Quarter: 2004Q4

REPORT INFORMATION
  Report Type: 
  Country: None (occurrence: None)
  Receive Date: 20041102
  Receipt Date: 20041021
  Transmission Date: 20050328
  Serious: Yes (Death)
  Sender: FDA-Public Use
  Company Number: B0349379A

PATIENT
  Age: 69 Year
  Sex: Female

DRUGS (2)
  1. FLOXACILLIN SODIUM [Suspect]
     Indication: SEPTIC SHOCK
     Dosage: 2 GRAM (S)/THREE TIMES PER DAY/INTRA
     Dates: start: 20040425, end: 20040425
  2. FORTAZ [Suspect]
     Indication: SEPTIC SHOCK
     Dosage: 2 GRAM(S)/THREE TIMES PER DAY/INTRA
     Dates: start: 20040425, end: 20040425

REACTIONS (2)
  - MULTI-ORGAN FAILURE [None]
  - SEPTIC SHOCK [None]
